FAERS Safety Report 15618250 (Version 5)
Quarter: 2019Q1

REPORT INFORMATION
  Report Type: Report from Study
  Country: US (occurrence: US)
  Receive Date: 20181114
  Receipt Date: 20190123
  Transmission Date: 20190417
  Serious: Yes (Life-Threatening, Hospitalization)
  Sender: FDA-Public Use
  Company Number: US-PFIZER INC-2018463756

PATIENT
  Age: 64 Year
  Sex: Male
  Weight: 61.5 kg

DRUGS (4)
  1. LORATADINE. [Concomitant]
     Active Substance: LORATADINE
     Indication: RASH
     Dosage: 10 MG, AS NEEDED
     Route: 048
     Dates: start: 20181028
  2. AXITINIB [Suspect]
     Active Substance: AXITINIB
     Indication: LUNG NEOPLASM MALIGNANT
     Dosage: 5 MG, EVERY DAY
     Route: 048
     Dates: start: 20181022, end: 20181107
  3. MIRALAX [Concomitant]
     Active Substance: POLYETHYLENE GLYCOL 3350
     Indication: CONSTIPATION
     Dosage: 17 G, AS NEEDED
     Route: 048
     Dates: start: 20181105, end: 20181105
  4. AVELUMAB [Suspect]
     Active Substance: AVELUMAB
     Indication: LUNG NEOPLASM MALIGNANT
     Dosage: 800 MG, EVERY TWO WEEKS
     Route: 042
     Dates: start: 20181022, end: 20181107

REACTIONS (1)
  - Pneumothorax [Recovered/Resolved with Sequelae]

NARRATIVE: CASE EVENT DATE: 20181107
